FAERS Safety Report 15036033 (Version 2)
Quarter: 2018Q2

REPORT INFORMATION
  Report Type: Report from Study
  Country: CN (occurrence: CN)
  Receive Date: 20180620
  Receipt Date: 20180627
  Transmission Date: 20180711
  Serious: Yes (Death)
  Sender: FDA-Public Use
  Company Number: CN-AMGEN-CHNCT2018083274

PATIENT
  Age: 74 Year
  Sex: Male

DRUGS (16)
  1. BAYASPIRIN [Concomitant]
     Active Substance: ASPIRIN
     Indication: CORONARY ARTERY DISEASE
     Dosage: 100 MG, QD
     Route: 048
  2. ESTAZOLAM. [Concomitant]
     Active Substance: ESTAZOLAM
     Indication: INSOMNIA
     Dosage: 1 MG, QD
     Route: 048
  3. ISOSORBIDE MONONITRATE. [Concomitant]
     Active Substance: ISOSORBIDE MONONITRATE
     Indication: CORONARY ARTERY DISEASE
     Dosage: 1 DF, TID
     Route: 048
  4. FOLIC ACID. [Concomitant]
     Active Substance: FOLIC ACID
     Indication: ANAEMIA
     Dosage: 5 MG, BID
     Route: 048
  5. VITAMIN B1 [Concomitant]
     Active Substance: THIAMINE HYDROCHLORIDE
     Indication: ANAEMIA
     Dosage: 5 DF, BID
  6. MECOBALAMIN [Concomitant]
     Active Substance: METHYLCOBALAMIN
     Indication: NEUROPATHY PERIPHERAL
     Dosage: 500 MUG, BID
     Route: 048
  7. CALCITRIOL. [Concomitant]
     Active Substance: CALCITRIOL
     Indication: HYPERPARATHYROIDISM
     Dosage: 2.5 MUG, QD
  8. METOPROLOL SUCCINATE. [Concomitant]
     Active Substance: METOPROLOL SUCCINATE
     Indication: CORONARY ARTERY DISEASE
     Dosage: 1 DF, QD
  9. ROSUVASTATIN CALCIUM. [Concomitant]
     Active Substance: ROSUVASTATIN CALCIUM
     Indication: HYPERTENSION
     Dosage: 5 MG, QD
     Route: 048
  10. CALCIUM ACETATE. [Concomitant]
     Active Substance: CALCIUM ACETATE
     Indication: HYPERPHOSPHATAEMIA
     Dosage: 1.334 G, TID
     Route: 048
  11. SODIUM BICARBONATE. [Concomitant]
     Active Substance: SODIUM BICARBONATE
     Indication: ACIDOSIS
     Dosage: 2 DF, TID
  12. FELODIPINE. [Concomitant]
     Active Substance: FELODIPINE
     Indication: HYPERTENSION
     Dosage: 5 MG, QD
     Route: 048
  13. HERBAL [Concomitant]
     Indication: CORONARY ARTERY DISEASE
     Dosage: 2 DF, BID
     Route: 048
  14. SUCROFERRIC OXYHYDROXIDE [Concomitant]
     Active Substance: FERRIC OXYHYDROXIDE
     Indication: ANAEMIA
     Dosage: 100 MUG, QD
  15. INSULIN LISPRO [Concomitant]
     Active Substance: INSULIN LISPRO
     Indication: DIABETES MELLITUS
     Dosage: 14 IU, QD
     Route: 058
  16. CINACALCET HCL [Suspect]
     Active Substance: CINACALCET HYDROCHLORIDE
     Indication: HYPERPARATHYROIDISM SECONDARY
     Dosage: 25 MG, QD
     Route: 048
     Dates: start: 20170920

REACTIONS (1)
  - Sudden cardiac death [Fatal]

NARRATIVE: CASE EVENT DATE: 20180602
